FAERS Safety Report 15417255 (Version 2)
Quarter: 2018Q4

REPORT INFORMATION
  Report Type: Report from Study
  Country: CL (occurrence: CL)
  Receive Date: 20180924
  Receipt Date: 20181011
  Transmission Date: 20190204
  Serious: Yes (Hospitalization, Other)
  Sender: FDA-Public Use
  Company Number: CL-BRISTOL-MYERS SQUIBB COMPANY-BMS-2018-049071

PATIENT
  Sex: Female

DRUGS (1)
  1. ABATACEPT [Suspect]
     Active Substance: ABATACEPT
     Indication: RHEUMATOID ARTHRITIS
     Dosage: 125 MG, QWK
     Route: 058
     Dates: start: 20180326, end: 201804

REACTIONS (20)
  - Aortitis [Recovering/Resolving]
  - Dyspnoea [Recovering/Resolving]
  - Anxiety [Recovering/Resolving]
  - Immobile [Recovering/Resolving]
  - Gait disturbance [Unknown]
  - Diarrhoea [Recovering/Resolving]
  - General physical health deterioration [Unknown]
  - Depression [Recovering/Resolving]
  - Weight decreased [Recovering/Resolving]
  - Fatigue [Recovering/Resolving]
  - Cardiac murmur [Recovering/Resolving]
  - Renal disorder [Unknown]
  - Small intestine carcinoma [Unknown]
  - Abdominal discomfort [Unknown]
  - Furuncle [Recovering/Resolving]
  - Back pain [Recovering/Resolving]
  - Asthenia [Recovering/Resolving]
  - Appetite disorder [Recovering/Resolving]
  - Vomiting [Recovering/Resolving]
  - Decreased immune responsiveness [Recovering/Resolving]
